FAERS Safety Report 23917434 (Version 1)
Quarter: 2024Q2

REPORT INFORMATION
  Report Type: Spontaneous
  Country: CN (occurrence: CN)
  Receive Date: 20240529
  Receipt Date: 20240529
  Transmission Date: 20240716
  Serious: Yes (Hospitalization)
  Sender: FDA-Public Use
  Company Number: CN-BEIGENE-BGN-2024-007920

PATIENT

DRUGS (6)
  1. TISLELIZUMAB [Suspect]
     Active Substance: TISLELIZUMAB
     Indication: Nasopharyngeal cancer
     Dosage: 200 MILLIGRAM
     Route: 041
     Dates: start: 20240418
  2. TISLELIZUMAB [Suspect]
     Active Substance: TISLELIZUMAB
     Indication: Hepatic cancer
  3. CISPLATIN [Suspect]
     Active Substance: CISPLATIN
     Indication: Nasopharyngeal cancer
     Dosage: 35 MILLIGRAM
     Route: 041
     Dates: start: 20240418
  4. CISPLATIN [Suspect]
     Active Substance: CISPLATIN
     Indication: Hepatic cancer
  5. GEMCITABINE [Concomitant]
     Active Substance: GEMCITABINE
     Indication: Nasopharyngeal cancer
     Dosage: 1.2 GRAM
     Route: 041
     Dates: start: 20240418
  6. GEMCITABINE [Concomitant]
     Active Substance: GEMCITABINE
     Indication: Hepatic cancer

REACTIONS (2)
  - Cholestatic liver injury [Not Recovered/Not Resolved]
  - Bilirubin conjugated increased [Not Recovered/Not Resolved]

NARRATIVE: CASE EVENT DATE: 20240422
